FAERS Safety Report 21262154 (Version 1)
Quarter: 2022Q3

REPORT INFORMATION
  Report Type: Report from Study
  Country: DE (occurrence: DE)
  Receive Date: 20220827
  Receipt Date: 20220827
  Transmission Date: 20221027
  Serious: Yes (Hospitalization, Other)
  Sender: FDA-Public Use
  Company Number: DE-ABBVIE-22K-062-4516079-00

PATIENT
  Age: 43 Year
  Sex: Male

DRUGS (3)
  1. SKYRIZI [Suspect]
     Active Substance: RISANKIZUMAB-RZAA
     Indication: Psoriasis
     Route: 058
     Dates: start: 20220130
  2. HUMIRA [Suspect]
     Active Substance: ADALIMUMAB
     Indication: Product used for unknown indication
     Route: 058
  3. PANTOPRAZOLE SODIUM [Concomitant]
     Active Substance: PANTOPRAZOLE SODIUM
     Indication: Chronic gastritis
     Route: 048

REACTIONS (6)
  - Seizure [Recovered/Resolved]
  - Spinal fracture [Recovering/Resolving]
  - Upper limb fracture [Recovering/Resolving]
  - Impaired healing [Recovering/Resolving]
  - Post procedural complication [Recovering/Resolving]
  - Memory impairment [Recovered/Resolved]

NARRATIVE: CASE EVENT DATE: 20220401
